FAERS Safety Report 15487151 (Version 1)
Quarter: 2018Q4

REPORT INFORMATION
  Report Type: Spontaneous
  Country: US (occurrence: US)
  Receive Date: 20181011
  Receipt Date: 20181011
  Transmission Date: 20190205
  Serious: Yes (Other)
  Sender: FDA-Public Use
  Company Number: US-AUROBINDO-AUR-APU-2018-048521

PATIENT
  Age: 44 Year
  Sex: Male

DRUGS (3)
  1. MIRTAZAPINE TABLETS 30 MG [Suspect]
     Active Substance: MIRTAZAPINE
     Indication: INSOMNIA
  2. MIRTAZAPINE TABLETS 30 MG [Suspect]
     Active Substance: MIRTAZAPINE
     Indication: MAJOR DEPRESSION
     Dosage: 1 DOSAGE FORM, AT BED TIME
     Route: 048
     Dates: start: 20170606, end: 20170926
  3. MIRTAZAPINE TABLETS 30 MG [Suspect]
     Active Substance: MIRTAZAPINE
     Indication: ANXIETY
     Dosage: 1 DOSAGE FORM, AT BED TIME
     Route: 048
     Dates: start: 20161213

REACTIONS (6)
  - Pain [Unknown]
  - Decubitus ulcer [Unknown]
  - Condition aggravated [Unknown]
  - Rash pruritic [Unknown]
  - Skin wound [Unknown]
  - Skin haemorrhage [Unknown]

NARRATIVE: CASE EVENT DATE: 20170304
